FAERS Safety Report 17103315 (Version 1)
Quarter: 2019Q4

REPORT INFORMATION
  Report Type: Spontaneous
  Country: US (occurrence: US)
  Receive Date: 20191202
  Receipt Date: 20191202
  Transmission Date: 20200122
  Serious: Yes (Hospitalization, Other)
  Sender: FDA-Public Use
  Company Number: None

PATIENT
  Age: 69 Year
  Sex: Male
  Weight: 58.1 kg

DRUGS (5)
  1. SULFAMETHOXAZOLE-TRIMETHOPRIM [Suspect]
     Active Substance: SULFAMETHOXAZOLE\TRIMETHOPRIM
     Indication: PNEUMOCYSTIS JIROVECII PNEUMONIA
     Route: 042
     Dates: start: 20190826, end: 20190917
  2. ENOXAPARIN 40MG DAILY [Concomitant]
     Dates: start: 20190902, end: 20190907
  3. SULFAMETHOXAZOLE-TRIMETHOPRIM [Suspect]
     Active Substance: SULFAMETHOXAZOLE\TRIMETHOPRIM
     Indication: PROPHYLAXIS
     Dosage: ?          OTHER FREQUENCY:Q MWF;?
     Route: 048
     Dates: start: 20190918, end: 20190930
  4. HEPARIN 5000U Q8H [Concomitant]
     Dates: start: 20190828, end: 20190902
  5. HEPARIN 5000U Q8H [Concomitant]
     Dates: start: 20190919, end: 20190930

REACTIONS (2)
  - Thrombocytopenia [None]
  - Hyperkalaemia [None]

NARRATIVE: CASE EVENT DATE: 20190902
